FAERS Safety Report 23730936 (Version 2)
Quarter: 2024Q3

REPORT INFORMATION
  Report Type: Spontaneous
  Country: US (occurrence: US)
  Receive Date: 20240411
  Receipt Date: 20240813
  Transmission Date: 20241016
  Serious: Yes (Death, Hospitalization, Other)
  Sender: DR REDDYS
  Company Number: None

PATIENT
  Age: 78 Year
  Sex: Male

DRUGS (8)
  1. HEPARIN [Suspect]
     Active Substance: HEPARIN SODIUM
     Indication: Atrial fibrillation
  2. AMIODARONE [Suspect]
     Active Substance: AMIODARONE
     Indication: Cardiac failure
  3. AMIODARONE [Suspect]
     Active Substance: AMIODARONE
     Indication: Atrial fibrillation
  4. DOXYCYCLINE [Suspect]
     Active Substance: DOXYCYCLINE\DOXYCYCLINE HYCLATE
     Indication: Human anaplasmosis
  5. FUROSEMIDE [Suspect]
     Active Substance: FUROSEMIDE
     Indication: Cardiac failure
  6. DIGOXIN [Suspect]
     Active Substance: DIGOXIN
     Indication: Cardiac failure
  7. DIGOXIN [Suspect]
     Active Substance: DIGOXIN
     Indication: Atrial fibrillation
  8. DILTIAZEM [Suspect]
     Active Substance: DILTIAZEM
     Indication: Atrial fibrillation

REACTIONS (6)
  - Drug ineffective [Fatal]
  - Heparin-induced thrombocytopenia [Unknown]
  - Staphylococcal bacteraemia [Unknown]
  - Anuria [Unknown]
  - Condition aggravated [Unknown]
  - Product use in unapproved indication [Unknown]
